FAERS Safety Report 7544516-8 (Version None)
Quarter: 2011Q2

REPORT INFORMATION
  Report Type: 
  Country: None (occurrence: None)
  Receive Date: 20110613
  Receipt Date: 20110607
  Transmission Date: 20111010
  Serious: Yes (Other)
  Sender: FDA-Public Use
  Company Number: US-MERCK-1008USA02716

PATIENT
  Age: 39 Year
  Sex: Female

DRUGS (3)
  1. TRUVADA [Suspect]
     Route: 048
  2. LOPINAVIR AND RITONAVIR [Suspect]
     Route: 048
     Dates: start: 20100809
  3. ISENTRESS [Suspect]
     Route: 048

REACTIONS (2)
  - ABORTION SPONTANEOUS [None]
  - DRUG EXPOSURE DURING PREGNANCY [None]
